FAERS Safety Report 20598910 (Version 1)
Quarter: 2022Q1

REPORT INFORMATION
  Report Type: Other
  Country: US (occurrence: None)
  Receive Date: 20220315
  Receipt Date: 20220315
  Transmission Date: 20220423
  Serious: No
  Sender: FDA-Public Use
  Company Number: US-ROCHE-3048197

PATIENT
  Age: 55 Year
  Sex: Female
  Weight: 99.880 kg

DRUGS (1)
  1. OCREVUS [Suspect]
     Active Substance: OCRELIZUMAB
     Indication: Multiple sclerosis
     Dosage: DATE OF TREATMENT 29/JUL/2020 AND 15/JAN/2021
     Route: 042

REACTIONS (2)
  - COVID-19 [Unknown]
  - Drug level decreased [Unknown]

NARRATIVE: CASE EVENT DATE: 20211201
